FAERS Safety Report 9283173 (Version 2)
Quarter: 2013Q4

REPORT INFORMATION
  Report Type: Spontaneous
  Country: US (occurrence: US)
  Receive Date: 20130510
  Receipt Date: 20131217
  Transmission Date: 20140711
  Serious: Yes (Other)
  Sender: FDA-Public Use
  Company Number: US-GLAXOSMITHKLINE-A0984322A

PATIENT
  Age: 62 Year
  Sex: Female
  Weight: 63 kg

DRUGS (9)
  1. TYKERB [Suspect]
     Indication: BREAST CANCER
     Dosage: 250MG AS DIRECTED
     Route: 048
     Dates: start: 20120207, end: 20130927
  2. LIPITOR [Concomitant]
     Route: 048
  3. NASONEX [Concomitant]
     Route: 045
  4. TOPROL XL [Concomitant]
     Route: 048
  5. CALCIUM [Concomitant]
     Route: 048
  6. HERCEPTIN [Concomitant]
     Route: 042
  7. FLOVENT [Concomitant]
     Route: 045
  8. AZELASTINE [Concomitant]
     Route: 045
  9. CHLOR-TRIMETON [Concomitant]
     Route: 048

REACTIONS (4)
  - Fatigue [Unknown]
  - Diarrhoea [Unknown]
  - Alopecia [Unknown]
  - Central nervous system lesion [Unknown]
